FAERS Safety Report 6092358-5 (Version None)
Quarter: 2009Q1

REPORT INFORMATION
  Report Type: 
  Country: None (occurrence: None)
  Receive Date: 20090223
  Receipt Date: 20090223
  Transmission Date: 20090719
  Serious: Yes (Other)
  Sender: FDA-Public Use
  Company Number: None

PATIENT
  Sex: Female
  Weight: 64.4108 kg

DRUGS (2)
  1. CAPECITABINE, 500MG TABLETS, ROCHE [Suspect]
     Indication: PANCREATIC CARCINOMA METASTATIC
     Dosage: 937, 5MG/M2; 1500MG BID, DAYS 1-7/14 ORALLY
     Route: 048
     Dates: start: 20080924, end: 20081125
  2. GEMCITABINE [Suspect]
     Indication: PANCREATIC CARCINOMA METASTATIC
     Dosage: 100MG/M2 EVERY 2 WEEKS IV
     Route: 042
     Dates: start: 20080924, end: 20081119

REACTIONS (8)
  - BLISTER [None]
  - DISCOMFORT [None]
  - DRY SKIN [None]
  - PALMAR-PLANTAR ERYTHRODYSAESTHESIA SYNDROME [None]
  - RASH [None]
  - SKIN CHAPPED [None]
  - SKIN EXFOLIATION [None]
  - SKIN LACERATION [None]
